FAERS Safety Report 8586472-X (Version None)
Quarter: 2012Q3

REPORT INFORMATION
  Report Type: 
  Country: None (occurrence: None)
  Receive Date: 20120810
  Receipt Date: 20120802
  Transmission Date: 20120928
  Serious: Yes (Death)
  Sender: FDA-Public Use
  Company Number: DE-VERTEX PHARMACEUTICALS INC.-000000000000001171

PATIENT
  Age: 52 Year
  Sex: Male

DRUGS (4)
  1. INCIVO [Suspect]
     Indication: HEPATITIS C
     Dosage: DOSAGE FORM: TABLET
     Route: 048
  2. OTHER DRUGS (UNSPECIFIED) [Concomitant]
     Indication: HEPATITIS C
     Route: 065
  3. OTHER DRUGS (UNSPECIFIED) [Concomitant]
     Route: 065
  4. OTHER DRUGS (UNSPECIFIED) [Concomitant]

REACTIONS (2)
  - DEATH [None]
  - DRUG INEFFECTIVE [None]
